FAERS Safety Report 20322850 (Version 1)
Quarter: 2022Q1

REPORT INFORMATION
  Report Type: Spontaneous
  Country: CI (occurrence: CI)
  Receive Date: 20220111
  Receipt Date: 20220111
  Transmission Date: 20220423
  Serious: Yes (Hospitalization, Other)
  Sender: FDA-Public Use
  Company Number: CI-CASPER PHARMA LLC-2021CAS000714

PATIENT
  Age: 5 Year
  Sex: Male

DRUGS (2)
  1. PENICILLIN G BENZATHINE [Suspect]
     Active Substance: PENICILLIN G BENZATHINE
     Indication: Rash
     Dosage: 1.2 MILLION UI
     Route: 014
  2. LIDOCAINE [Concomitant]
     Active Substance: LIDOCAINE
     Indication: Rash
     Route: 014

REACTIONS (2)
  - Embolia cutis medicamentosa [Recovered/Resolved]
  - Product use in unapproved indication [Unknown]
